FAERS Safety Report 6999864-7 (Version None)
Quarter: 2010Q3

REPORT INFORMATION
  Report Type: 
  Country: None (occurrence: None)
  Receive Date: 20100920
  Receipt Date: 20070608
  Transmission Date: 20110219
  Serious: Yes (Other)
  Sender: FDA-Public Use
  Company Number: US-ASTRAZENECA-2006UW27768

PATIENT
  Age: 54 Year
  Sex: Female
  Weight: 93.2 kg

DRUGS (17)
  1. SEROQUEL [Suspect]
     Indication: BIPOLAR II DISORDER
     Route: 048
     Dates: start: 20000101, end: 20040101
  2. SEROQUEL [Suspect]
     Dosage: 100 - 300 MG
     Route: 048
     Dates: start: 20020703
  3. HOODIA [Concomitant]
  4. RISPERDAL [Concomitant]
     Dates: start: 20000101, end: 20030101
  5. RISPERDAL [Concomitant]
     Dosage: 1 MG HALF TABLET Q.H.S
     Route: 048
     Dates: start: 20020626
  6. PAXIL [Concomitant]
     Indication: DEPRESSION
     Dates: start: 20050101
  7. PAXIL [Concomitant]
     Route: 048
     Dates: start: 20060822
  8. SOMA [Concomitant]
     Dosage: 250 - 350 MG
     Route: 048
     Dates: start: 20000513
  9. PREMARIN [Concomitant]
     Route: 048
     Dates: start: 19990201
  10. LASIX [Concomitant]
     Route: 048
     Dates: start: 20040220
  11. DEPAKOTE [Concomitant]
     Route: 048
     Dates: start: 20020626
  12. PROZAC [Concomitant]
     Dosage: 20 - 40 MG
     Route: 048
     Dates: start: 20020626
  13. BISOPROLOL [Concomitant]
     Indication: HYPERTENSION
     Dosage: 5 - 10 MG
     Route: 048
     Dates: start: 20040220
  14. NEURONTIN [Concomitant]
     Route: 048
     Dates: start: 20020326
  15. ZOCOR [Concomitant]
     Route: 048
     Dates: start: 20041013
  16. ATIVAN [Concomitant]
     Dosage: 1 - 2 MG
     Route: 048
     Dates: start: 20041013
  17. CYMBALTA [Concomitant]
     Route: 048
     Dates: start: 20050630

REACTIONS (4)
  - DIABETES MELLITUS [None]
  - DIABETIC COMA [None]
  - MONONEURITIS [None]
  - TYPE 2 DIABETES MELLITUS [None]
